FAERS Safety Report 15356106 (Version 2)
Quarter: 2018Q3

REPORT INFORMATION
  Report Type: Report from Study
  Country: IT (occurrence: IT)
  Receive Date: 20180906
  Receipt Date: 20180914
  Transmission Date: 20181010
  Serious: Yes (Hospitalization)
  Sender: FDA-Public Use
  Company Number: IT-PFIZER INC-2018354907

PATIENT
  Age: 76 Year
  Sex: Female

DRUGS (2)
  1. FENTANEST [Suspect]
     Active Substance: FENTANYL CITRATE
     Indication: RENAL COLIC
     Dosage: 1 DF, TOTAL
     Route: 042
     Dates: start: 20180624, end: 20180624
  2. CONTRAMAL [Suspect]
     Active Substance: TRAMADOL HYDROCHLORIDE
     Indication: RENAL COLIC
     Dosage: 100 MG, TOTAL
     Route: 030
     Dates: start: 20180624, end: 20180624

REACTIONS (3)
  - Drug ineffective [Recovering/Resolving]
  - Dysuria [Recovering/Resolving]
  - Flank pain [Recovering/Resolving]

NARRATIVE: CASE EVENT DATE: 20180624
